FAERS Safety Report 6254294-0 (Version None)
Quarter: 2009Q3

REPORT INFORMATION
  Report Type: 
  Country: None (occurrence: None)
  Receive Date: 20090701
  Receipt Date: 20090701
  Transmission Date: 20100115
  Serious: Yes (Life-Threatening, Hospitalization)
  Sender: FDA-Public Use
  Company Number: None

PATIENT
  Age: 80 Year
  Sex: Female

DRUGS (1)
  1. ZOSYN [Suspect]
     Indication: SURGERY
     Dates: start: 20090514, end: 20090515

REACTIONS (1)
  - IDIOPATHIC THROMBOCYTOPENIC PURPURA [None]
